FAERS Safety Report 6277757-0 (Version None)
Quarter: 2009Q3

REPORT INFORMATION
  Report Type: 
  Country: None (occurrence: None)
  Receive Date: 20090722
  Receipt Date: 20090716
  Transmission Date: 20100115
  Serious: Yes (Death, Life-Threatening, Hospitalization)
  Sender: FDA-Public Use
  Company Number: B0584308A

PATIENT
  Sex: Female

DRUGS (3)
  1. ZOVIRAX [Suspect]
     Indication: VARICELLA
     Dosage: 8MGK THREE TIMES PER DAY
     Route: 042
     Dates: start: 20090128, end: 20090204
  2. METHOTREXATE [Suspect]
     Dosage: 40MG WEEKLY
     Route: 058
     Dates: start: 20081101, end: 20090131
  3. AUGMENTIN [Concomitant]
     Indication: LYMPHANGITIS
     Route: 065
     Dates: start: 20090203

REACTIONS (10)
  - ACUTE PULMONARY OEDEMA [None]
  - BONE MARROW FAILURE [None]
  - GASTROENTERITIS ESCHERICHIA COLI [None]
  - HEPATIC FAILURE [None]
  - HEPATOCELLULAR INJURY [None]
  - LYMPHANGITIS [None]
  - MUCOSAL INFLAMMATION [None]
  - OFF LABEL USE [None]
  - RENAL FAILURE ACUTE [None]
  - SEPTIC SHOCK [None]
